FAERS Safety Report 14393023 (Version 1)
Quarter: 2018Q1

REPORT INFORMATION
  Report Type: Spontaneous
  Country: US (occurrence: US)
  Receive Date: 20180112
  Receipt Date: 20180112
  Transmission Date: 20180509
  Serious: No
  Sender: FDA-Public Use
  Company Number: None

PATIENT
  Sex: Female

DRUGS (1)
  1. ZEJULA [Suspect]
     Active Substance: NIRAPARIB
     Indication: OVARIAN CANCER
     Dates: start: 20170509

REACTIONS (9)
  - Insomnia [None]
  - Constipation [None]
  - Neck pain [None]
  - Acquired gene mutation [None]
  - Back pain [None]
  - BRCA1 gene mutation [None]
  - Platelet count decreased [None]
  - Large intestinal obstruction [None]
  - Headache [None]
